FAERS Safety Report 21854726 (Version 1)
Quarter: 2023Q1

REPORT INFORMATION
  Report Type: Spontaneous
  Country: NL (occurrence: NL)
  Receive Date: 20230112
  Receipt Date: 20230112
  Transmission Date: 20230418
  Serious: Yes (Other)
  Sender: FDA-Public Use
  Company Number: None

PATIENT
  Sex: Male
  Weight: 88 kg

DRUGS (1)
  1. LEVOFLOXACIN [Suspect]
     Active Substance: LEVOFLOXACIN
     Indication: Epididymitis
     Dosage: 500 MILLIGRAM DAILY;   BRAND NAME NOT SPECIFIED
     Route: 065
     Dates: start: 20220202

REACTIONS (1)
  - Aortic aneurysm [Not Recovered/Not Resolved]
